FAERS Safety Report 10897270 (Version 1)
Quarter: 2015Q1

REPORT INFORMATION
  Report Type: Spontaneous
  Country: US (occurrence: None)
  Receive Date: 20150302
  Receipt Date: 20150302
  Transmission Date: 20150721
  Serious: Yes (Other)
  Sender: FDA-Public Use
  Company Number: None

PATIENT
  Age: 11 Year
  Sex: Female
  Weight: 60 kg

DRUGS (4)
  1. ALBUTEROL. [Concomitant]
     Active Substance: ALBUTEROL
  2. AZITHROMYCIN [Concomitant]
     Active Substance: AZITHROMYCIN ANHYDROUS
  3. PREDNISONE 20MG [Suspect]
     Active Substance: PREDNISONE
     Indication: ASTHMA
     Dosage: 9 PILLS QD ORAL
     Route: 048
     Dates: start: 20150222, end: 20150224
  4. PREDNISONE 20MG [Suspect]
     Active Substance: PREDNISONE
     Indication: PNEUMONIA
     Dosage: 9 PILLS QD ORAL
     Route: 048
     Dates: start: 20150222, end: 20150224

REACTIONS (3)
  - Urine flow decreased [None]
  - Urinary retention [None]
  - Dysuria [None]

NARRATIVE: CASE EVENT DATE: 20150227
